FAERS Safety Report 14161053 (Version 2)
Quarter: 2017Q4

REPORT INFORMATION
  Report Type: Spontaneous
  Country: JP (occurrence: JP)
  Receive Date: 20171106
  Receipt Date: 20171127
  Transmission Date: 20180321
  Serious: Yes (Other)
  Sender: FDA-Public Use
  Company Number: JP-UCBSA-2017042754

PATIENT
  Age: 4 Year
  Sex: Female
  Weight: 18 kg

DRUGS (2)
  1. E KEPPRA [Suspect]
     Active Substance: LEVETIRACETAM
     Indication: EPILEPSY
     Dosage: 1500 MG DAILY (60 MG/KG/DAY)
     Route: 048
  2. TEGRETOL [Concomitant]
     Active Substance: CARBAMAZEPINE
     Indication: EPILEPSY
     Dosage: 150 MG, ONCE DAILY (QD)
     Route: 048

REACTIONS (3)
  - Off label use [Unknown]
  - Overdose [Unknown]
  - Epilepsy [Unknown]
